FAERS Safety Report 7936892-9 (Version None)
Quarter: 2011Q4

REPORT INFORMATION
  Report Type: 
  Country: None (occurrence: None)
  Receive Date: 20111123
  Receipt Date: 20111108
  Transmission Date: 20120403
  Serious: Yes (Other)
  Sender: FDA-Public Use
  Company Number: BE-ROCHE-1013637

PATIENT
  Sex: Female
  Weight: 103 kg

DRUGS (5)
  1. OMALIZUMAB [Suspect]
     Indication: ASTHMA
     Route: 058
     Dates: start: 20110720, end: 20111011
  2. MONTELUKAST SODIUM [Concomitant]
     Indication: ASTHMA
  3. OMEPRAZOLE [Concomitant]
     Indication: OESOPHAGITIS
  4. FLUTICASONE PROPIONATE [Concomitant]
  5. SALMETEROL [Concomitant]
     Indication: ASTHMA

REACTIONS (3)
  - SERUM SICKNESS [None]
  - MALAISE [None]
  - ANTINUCLEAR ANTIBODY POSITIVE [None]
